FAERS Safety Report 18564104 (Version 5)
Quarter: 2025Q3

REPORT INFORMATION
  Report Type: Spontaneous
  Country: US (occurrence: US)
  Receive Date: 20201201
  Receipt Date: 20250807
  Transmission Date: 20251021
  Serious: Yes (Hospitalization, Other)
  Sender: NOVO NORDISK
  Company Number: US-NOVOPROD-769444

PATIENT
  Age: 67 Year
  Sex: Male

DRUGS (3)
  1. NOVOLOG [Suspect]
     Active Substance: INSULIN ASPART
     Indication: Type 1 diabetes mellitus
     Dosage: 4 IU, BID
     Route: 058
  2. NOVOLOG [Suspect]
     Active Substance: INSULIN ASPART
     Dosage: 8 IU, BID
     Route: 058
  3. TRESIBA [Suspect]
     Active Substance: INSULIN DEGLUDEC
     Indication: Type 1 diabetes mellitus
     Dosage: 8 IU, QD
     Route: 058

REACTIONS (3)
  - Dyspnoea [Unknown]
  - Pneumonia [Not Recovered/Not Resolved]
  - Stent placement [Unknown]

NARRATIVE: CASE EVENT DATE: 20201116
